FAERS Safety Report 8992700 (Version 2)
Quarter: 2013Q2

REPORT INFORMATION
  Report Type: Report from Study
  Country: JP (occurrence: JP)
  Receive Date: 20130101
  Receipt Date: 20130401
  Transmission Date: 20140414
  Serious: Yes (Hospitalization, Other)
  Sender: FDA-Public Use
  Company Number: JP-009507513-1212JPN011008

PATIENT
  Age: 65 Year
  Sex: Male
  Weight: 56 kg

DRUGS (11)
  1. TEMODAL [Suspect]
     Indication: ANAPLASTIC ASTROCYTOMA
     Dosage: 150 MG/M2, QD
     Route: 048
     Dates: start: 20111028, end: 20111101
  2. TEMODAL [Suspect]
     Dosage: 75 MG/M2, QD
     Route: 048
     Dates: start: 20110628, end: 20110809
  3. TEMODAL [Suspect]
     Dosage: 150 MG, QD
     Route: 048
     Dates: start: 20111003, end: 20111007
  4. TEMODAL [Suspect]
     Dosage: 150 MG/M2, QD
     Route: 048
     Dates: start: 20120207, end: 20120211
  5. TEMODAL [Suspect]
     Dosage: 150 MG/M2, QD
     Route: 048
     Dates: start: 20120306, end: 20120310
  6. BAKTAR [Concomitant]
     Indication: ANTIFUNGAL PROPHYLAXIS
     Dosage: UNK
     Route: 048
     Dates: start: 20110803
  7. METGLUCO [Concomitant]
     Dosage: UNK
     Route: 048
     Dates: start: 20110628
  8. EQUA [Concomitant]
     Dosage: UNK
     Route: 048
     Dates: start: 20110629
  9. AMARYL [Concomitant]
     Dosage: UNK
     Route: 048
     Dates: start: 20110629
  10. GLACTIV [Concomitant]
     Dosage: UNK
     Route: 048
     Dates: start: 20110706
  11. KYTRIL [Concomitant]
     Indication: PROPHYLAXIS
     Dosage: UNK
     Route: 048
     Dates: start: 20111003

REACTIONS (3)
  - Pneumonia [Recovered/Resolved]
  - Blood glucose increased [Recovered/Resolved]
  - Lymphocyte count decreased [Recovered/Resolved]
